FAERS Safety Report 18674529 (Version 2)
Quarter: 2022Q1

REPORT INFORMATION
  Report Type: Spontaneous
  Country: DE (occurrence: DE)
  Receive Date: 20201228
  Receipt Date: 20220214
  Transmission Date: 20220423
  Serious: Yes (Death, Hospitalization)
  Sender: FDA-Public Use
  Company Number: DE-STEMLINE THERAPEUTICS, INC.-2020ST000084

PATIENT
  Age: 71 Year
  Sex: Female

DRUGS (3)
  1. ELZONRIS [Suspect]
     Active Substance: TAGRAXOFUSP-ERZS
     Indication: Product used for unknown indication
     Dosage: DAY 1 TO DAY 3 OF A 5-DAY CYCLE
     Route: 042
     Dates: start: 20201208, end: 20201211
  2. ACETAMINOPHEN [Concomitant]
     Active Substance: ACETAMINOPHEN
     Indication: Product used for unknown indication
  3. DEXAMETHASONE [Concomitant]
     Active Substance: DEXAMETHASONE
     Indication: Product used for unknown indication

REACTIONS (5)
  - Cardiac arrest [Fatal]
  - Respiratory failure [Fatal]
  - Lactic acidosis [Fatal]
  - Pyrexia [Recovered/Resolved]
  - Chills [Recovered/Resolved]

NARRATIVE: CASE EVENT DATE: 20201208
